FAERS Safety Report 8554973-6 (Version None)
Quarter: 2012Q3

REPORT INFORMATION
  Report Type: 
  Country: None (occurrence: None)
  Receive Date: 20120731
  Receipt Date: 20120730
  Transmission Date: 20120928
  Serious: Yes (Other)
  Sender: FDA-Public Use
  Company Number: CHPA2012US016635

PATIENT
  Age: 54 Year
  Sex: Female

DRUGS (1)
  1. VOLTAREN [Suspect]
     Indication: BACK PAIN
     Dosage: UNK, TWICE A DAY
     Route: 061
     Dates: start: 20110101, end: 20110101

REACTIONS (8)
  - THERAPEUTIC RESPONSE UNEXPECTED [None]
  - MUSCLE INJURY [None]
  - PAIN IN EXTREMITY [None]
  - DRUG ADMINISTERED AT INAPPROPRIATE SITE [None]
  - NERVE INJURY [None]
  - OFF LABEL USE [None]
  - HEAD INJURY [None]
  - ACCIDENT [None]
